FAERS Safety Report 9838133 (Version 3)
Quarter: 2014Q1

REPORT INFORMATION
  Report Type: Spontaneous
  Country: IT (occurrence: IT)
  Receive Date: 20140123
  Receipt Date: 20140327
  Transmission Date: 20141002
  Serious: Yes (Hospitalization)
  Sender: FDA-Public Use
  Company Number: IT-MYLANLABS-113AS20130748

PATIENT
  Age: 84 Year
  Sex: Male

DRUGS (10)
  1. LEVOFLOXACIN [Suspect]
     Indication: PYREXIA
     Dosage: 500 MG DAILY
     Route: 048
     Dates: start: 20131125, end: 20131129
  2. STILNOX [Concomitant]
     Indication: PRODUCT USED FOR UNKNOWN INDICATION
  3. CLENIL /00212602/ [Concomitant]
     Indication: PRODUCT USED FOR UNKNOWN INDICATION
  4. ATEM [Concomitant]
     Indication: PRODUCT USED FOR UNKNOWN INDICATION
  5. CEFTRIAXONE [Concomitant]
     Indication: PRODUCT USED FOR UNKNOWN INDICATION
  6. FUROSEMIDE [Concomitant]
     Indication: PRODUCT USED FOR UNKNOWN INDICATION
  7. LANSOPRAZOLE [Concomitant]
     Indication: PRODUCT USED FOR UNKNOWN INDICATION
  8. CLOPIDOGREL [Concomitant]
     Indication: PRODUCT USED FOR UNKNOWN INDICATION
  9. RAMIPRIL [Concomitant]
     Indication: PRODUCT USED FOR UNKNOWN INDICATION
  10. ALPRAZOLAM [Concomitant]
     Indication: PRODUCT USED FOR UNKNOWN INDICATION

REACTIONS (3)
  - Drug-induced liver injury [Recovering/Resolving]
  - Azotaemia [Recovered/Resolved]
  - Blood creatinine increased [Recovered/Resolved]
